FAERS Safety Report 19529137 (Version 1)
Quarter: 2021Q3

REPORT INFORMATION
  Report Type: Report from Study
  Country: US (occurrence: US)
  Receive Date: 20210713
  Receipt Date: 20210713
  Transmission Date: 20211014
  Serious: Yes (Hospitalization, Disabling, Other)
  Sender: FDA-Public Use
  Company Number: US-SA-2021SA157644

PATIENT
  Age: 60 Year
  Sex: Male

DRUGS (1)
  1. TERIFLUNOMIDE. [Suspect]
     Active Substance: TERIFLUNOMIDE
     Indication: MULTIPLE SCLEROSIS
     Dosage: 14 MG, QD
     Route: 048
     Dates: start: 20160819

REACTIONS (16)
  - Disability [Unknown]
  - Myocardial infarction [Recovered/Resolved]
  - Back disorder [Unknown]
  - Ligament sprain [Not Recovered/Not Resolved]
  - Blood urine present [Unknown]
  - Fluid retention [Unknown]
  - Loss of personal independence in daily activities [Not Recovered/Not Resolved]
  - Limb injury [Not Recovered/Not Resolved]
  - Walking aid user [Unknown]
  - Wound [Unknown]
  - Arthralgia [Unknown]
  - Balance disorder [Not Recovered/Not Resolved]
  - Renal failure [Unknown]
  - Fall [Unknown]
  - Condition aggravated [Unknown]
  - Exostosis [Unknown]

NARRATIVE: CASE EVENT DATE: 2020
